FAERS Safety Report 20070310 (Version 2)
Quarter: 2022Q1

REPORT INFORMATION
  Report Type: Report from Study
  Country: BR (occurrence: BR)
  Receive Date: 20211115
  Receipt Date: 20220119
  Transmission Date: 20220423
  Serious: Yes (Other)
  Sender: FDA-Public Use
  Company Number: BR-NOVARTISPH-NVSC2021BR256823

PATIENT
  Age: 66 Year
  Sex: Female

DRUGS (10)
  1. KISQALI [Suspect]
     Active Substance: RIBOCICLIB
     Indication: Product used for unknown indication
     Dosage: UNK
     Route: 065
     Dates: start: 202101, end: 202107
  2. KISQALI [Suspect]
     Active Substance: RIBOCICLIB
     Dosage: UNK
     Route: 065
     Dates: start: 202110
  3. KISQALI [Suspect]
     Active Substance: RIBOCICLIB
     Dosage: UNK (21 DAYS AND BREAK OF 7)
     Route: 065
     Dates: start: 20210104
  4. ZOMETA [Suspect]
     Active Substance: ZOLEDRONIC ACID
     Indication: Product used for unknown indication
     Dosage: UNK
     Route: 065
  5. LETROZOLE [Concomitant]
     Active Substance: LETROZOLE
     Indication: Product used for unknown indication
     Dosage: UNK
     Route: 065
     Dates: start: 2016
  6. ANASTROZOLE [Concomitant]
     Active Substance: ANASTROZOLE
     Indication: Antioestrogen therapy
     Dosage: UNK
     Route: 065
     Dates: start: 2016
  7. VAGIDRAT [Concomitant]
     Indication: Product used for unknown indication
     Dosage: UNK
     Route: 065
  8. TAMOXIFEN [Concomitant]
     Active Substance: TAMOXIFEN
     Indication: Antioestrogen therapy
     Dosage: UNK
     Route: 065
     Dates: start: 2016
  9. EXEMESTANE [Concomitant]
     Active Substance: EXEMESTANE
     Indication: Product used for unknown indication
     Dosage: UNK
     Route: 065
     Dates: start: 2016
  10. FASLODEX [Concomitant]
     Active Substance: FULVESTRANT
     Indication: Antioestrogen therapy
     Dosage: UNK
     Route: 065
     Dates: start: 2020

REACTIONS (22)
  - Neoplasm malignant [Unknown]
  - Bone cancer [Unknown]
  - Immunodeficiency [Unknown]
  - Epistaxis [Recovered/Resolved]
  - Speech disorder [Unknown]
  - Rhinitis [Not Recovered/Not Resolved]
  - Dry skin [Not Recovered/Not Resolved]
  - Sensitive skin [Not Recovered/Not Resolved]
  - Oral pain [Not Recovered/Not Resolved]
  - Nasal dryness [Not Recovered/Not Resolved]
  - Oropharyngeal discomfort [Not Recovered/Not Resolved]
  - Head discomfort [Unknown]
  - Erythema [Not Recovered/Not Resolved]
  - Tumour marker abnormal [Unknown]
  - Paraesthesia [Not Recovered/Not Resolved]
  - Dry mouth [Not Recovered/Not Resolved]
  - Pruritus [Not Recovered/Not Resolved]
  - Pain [Unknown]
  - Bursitis [Unknown]
  - Haemangioma [Unknown]
  - Carpal tunnel syndrome [Unknown]
  - Inappropriate schedule of product administration [Unknown]

NARRATIVE: CASE EVENT DATE: 20210601
